FAERS Safety Report 23987452 (Version 3)
Quarter: 2024Q4

REPORT INFORMATION
  Report Type: Report from Study
  Country: US (occurrence: US)
  Receive Date: 20240618
  Receipt Date: 20241219
  Transmission Date: 20250115
  Serious: Yes (Other)
  Sender: BAUSCH AND LOMB
  Company Number: US-BAUSCHBL-2024BNL028601

PATIENT
  Age: 79 Year
  Sex: Female

DRUGS (1)
  1. MIEBO [Suspect]
     Active Substance: PERFLUOROHEXYLOCTANE
     Indication: Dry eye
     Dosage: INSTILL ONE DROP INTO BOTH EYES FOUR TIMES DAILY
     Route: 047
     Dates: start: 20240502

REACTIONS (3)
  - Blindness transient [Unknown]
  - Atypical migraine [Unknown]
  - Aura [Unknown]

NARRATIVE: CASE EVENT DATE: 20240101
